FAERS Safety Report 5380803-X (Version None)
Quarter: 2007Q3

REPORT INFORMATION
  Report Type: 
  Country: None (occurrence: None)
  Receive Date: 20070706
  Receipt Date: 20070629
  Transmission Date: 20080115
  Serious: Yes (Other)
  Sender: FDA-Public Use
  Company Number: JP-MERCK-0705USA00114

PATIENT
  Age: 77 Year
  Sex: Female
  Weight: 44 kg

DRUGS (6)
  1. FOSAMAX [Suspect]
     Indication: OSTEOPOROSIS
     Route: 048
     Dates: start: 20060609, end: 20061013
  2. SOLETON [Concomitant]
     Indication: SPONDYLITIS
     Route: 048
     Dates: start: 20060712, end: 20061013
  3. ALINAMIN F (FURSULTIAMINE (+) RIBOFLAVIN) [Concomitant]
     Indication: SPONDYLITIS
     Route: 048
     Dates: start: 20060712, end: 20061013
  4. NU-LOTAN [Concomitant]
     Indication: HYPERTENSION
     Route: 048
     Dates: start: 19910101
  5. NORVASC [Concomitant]
     Indication: HYPERTENSION
     Route: 048
     Dates: start: 19910101
  6. ZOLPIDEM TARTRATE [Concomitant]
     Indication: INSOMNIA
     Route: 048
     Dates: start: 19910101

REACTIONS (1)
  - BLOOD PRESSURE INCREASED [None]
